FAERS Safety Report 4945956-3 (Version None)
Quarter: 2006Q1

REPORT INFORMATION
  Report Type: 
  Country: None (occurrence: None)
  Receive Date: 20060117
  Receipt Date: 20050304
  Transmission Date: 20060701
  Serious: No
  Sender: FDA-Public Use
  Company Number: FEI2005-0557

PATIENT
  Age: 28 Year
  Sex: Female

DRUGS (1)
  1. INTRAUTERINE COPPER CONTRACEPTIVE [Suspect]
     Indication: CONTRACEPTION
     Dosage: INTRA-UTERINE
     Route: 067
     Dates: start: 20040101

REACTIONS (4)
  - ENDOMETRIAL DISORDER [None]
  - ENDOMETRIOSIS [None]
  - UTERINE TENDERNESS [None]
  - VAGINAL HAEMORRHAGE [None]
